FAERS Safety Report 7910991-X (Version None)
Quarter: 2011Q4

REPORT INFORMATION
  Report Type: 
  Country: None (occurrence: None)
  Receive Date: 20111114
  Receipt Date: 20111107
  Transmission Date: 20120403
  Serious: No
  Sender: FDA-Public Use
  Company Number: US-BIOGENIDEC-2011BI042558

PATIENT
  Sex: Female

DRUGS (4)
  1. TYSABRI [Suspect]
     Indication: MULTIPLE SCLEROSIS
     Route: 042
     Dates: start: 20080501
  2. LORAZEPAM [Concomitant]
     Indication: STRESS
  3. TEMAZEPAM [Concomitant]
     Indication: STRESS
  4. PAROXETINE HCL [Concomitant]
     Indication: STRESS

REACTIONS (6)
  - MUSCLE RIGIDITY [None]
  - PARAESTHESIA [None]
  - URINARY INCONTINENCE [None]
  - BACK PAIN [None]
  - STRESS [None]
  - LIMB DISCOMFORT [None]
